FAERS Safety Report 17490044 (Version 1)
Quarter: 2020Q1

REPORT INFORMATION
  Report Type: Spontaneous
  Country: US (occurrence: US)
  Receive Date: 20200303
  Receipt Date: 20200303
  Transmission Date: 20200409
  Serious: No
  Sender: FDA-Public Use
  Company Number: US-AKORN PHARMACEUTICALS-2019AKN02380

PATIENT
  Sex: Female
  Weight: 48.07 kg

DRUGS (2)
  1. DEPO (PRESUMED PROVERA) SHOT [Concomitant]
     Dosage: UNK, 4X/YEAR
  2. MYORISAN [Suspect]
     Active Substance: ISOTRETINOIN
     Indication: ACNE
     Dosage: UNK, 1X/DAY IN THE MORNING
     Route: 048
     Dates: start: 2019, end: 2019

REACTIONS (4)
  - Off label use [Recovered/Resolved]
  - Rash papular [Recovered/Resolved]
  - Hypersensitivity [Recovered/Resolved]
  - Rash pruritic [Recovered/Resolved]

NARRATIVE: CASE EVENT DATE: 2019
